FAERS Safety Report 5143381-6 (Version None)
Quarter: 2006Q4

REPORT INFORMATION
  Report Type: 
  Country: None (occurrence: None)
  Receive Date: 20061101
  Receipt Date: 20061101
  Transmission Date: 20070319
  Serious: Yes (Hospitalization)
  Sender: FDA-Public Use
  Company Number: None

PATIENT
  Age: 50 Year
  Sex: Female
  Weight: 90.7194 kg

DRUGS (9)
  1. BORTEZOMIB IV [Suspect]
     Indication: MANTLE CELL LYMPHOMA
     Dosage: 2.4MG  D1+4 IV
     Route: 042
     Dates: start: 20061011
  2. BORTEZOMIB IV [Suspect]
     Indication: MANTLE CELL LYMPHOMA
     Dosage: 2.4MG  D1+4 IV
     Route: 042
     Dates: start: 20061014
  3. CYCLOPHOSPHAMIDE [Suspect]
     Dosage: 720 MG D1,2,3 IV
     Route: 042
     Dates: start: 20061011
  4. CYCLOPHOSPHAMIDE [Suspect]
     Dosage: 720 MG D1,2,3 IV
     Route: 042
     Dates: start: 20061012
  5. CYCLOPHOSPHAMIDE [Suspect]
     Dosage: 720 MG D1,2,3 IV
     Route: 042
     Dates: start: 20061013
  6. RITUXAN [Suspect]
     Dosage: 900 MG D1 IV
     Route: 042
  7. DOXORUBICIN HCL [Concomitant]
     Dosage: 60 MG D1-2 CIV
     Route: 042
     Dates: start: 20061011
  8. DOXORUBICIN HCL [Concomitant]
     Dosage: 60 MG D1-2 CIV
     Route: 042
     Dates: start: 20061012
  9. DEXAMETHASONE TAB [Suspect]
     Dosage: 40 MG D1-4 PO
     Route: 048
     Dates: start: 20061011, end: 20061014

REACTIONS (15)
  - BLOOD CULTURE POSITIVE [None]
  - BODY TEMPERATURE DECREASED [None]
  - CATHETER RELATED INFECTION [None]
  - COMPRESSION FRACTURE [None]
  - DEPRESSED LEVEL OF CONSCIOUSNESS [None]
  - HYPOTENSION [None]
  - MENTAL STATUS CHANGES [None]
  - OXYGEN SATURATION DECREASED [None]
  - RIB FRACTURE [None]
  - ROAD TRAFFIC ACCIDENT [None]
  - SEPTIC SHOCK [None]
  - SOMNOLENCE [None]
  - STAPHYLOCOCCAL INFECTION [None]
  - TACHYCARDIA [None]
  - THORACIC VERTEBRAL FRACTURE [None]
